FAERS Safety Report 17416154 (Version 25)
Quarter: 2020Q3

REPORT INFORMATION
  Report Type: Spontaneous
  Country: US (occurrence: US)
  Receive Date: 20200213
  Receipt Date: 20200825
  Transmission Date: 20201102
  Serious: Yes (Other)
  Sender: FDA-Public Use
  Company Number: US-ACTELION-A-NJ2020-201798

PATIENT
  Age: 71 Year
  Sex: Female
  Weight: 58.96 kg

DRUGS (10)
  1. REMODULIN [Suspect]
     Active Substance: TREPROSTINIL
     Indication: PRODUCT USED FOR UNKNOWN INDICATION
     Dosage: 30 NG/KG, PER MIN
     Route: 065
  2. REMODULIN [Suspect]
     Active Substance: TREPROSTINIL
     Dosage: 28 NG/KG, PER MIN
     Route: 042
  3. OPSUMIT [Suspect]
     Active Substance: MACITENTAN
     Indication: PULMONARY ARTERIAL HYPERTENSION
     Dosage: 10 MG, QD
     Route: 048
  4. UPTRAVI [Suspect]
     Active Substance: SELEXIPAG
     Dosage: 400 MCG, BID
     Route: 048
  5. UPTRAVI [Suspect]
     Active Substance: SELEXIPAG
     Dosage: 1400 MCG, BID
     Route: 048
  6. UPTRAVI [Suspect]
     Active Substance: SELEXIPAG
     Dosage: 200 MCG, BID
     Route: 048
     Dates: start: 20200204
  7. UPTRAVI [Suspect]
     Active Substance: SELEXIPAG
     Indication: PULMONARY ARTERIAL HYPERTENSION
     Dosage: 1600 MCG, BID
     Route: 048
  8. UPTRAVI [Suspect]
     Active Substance: SELEXIPAG
     Dosage: 800 MCG, BID
     Route: 048
  9. REMODULIN [Suspect]
     Active Substance: TREPROSTINIL
     Dosage: UNK UNK, PER MIN
     Route: 058
  10. SILDENAFIL. [Suspect]
     Active Substance: SILDENAFIL
     Indication: PRODUCT USED FOR UNKNOWN INDICATION
     Route: 065

REACTIONS (67)
  - HIV infection [Unknown]
  - Fatigue [Unknown]
  - Catheter site pain [Unknown]
  - Chest pain [Unknown]
  - Nasal congestion [Unknown]
  - Tearfulness [Unknown]
  - Food poisoning [Unknown]
  - Rotator cuff syndrome [Unknown]
  - Infusion site paraesthesia [Unknown]
  - Pollakiuria [Unknown]
  - Liver disorder [Unknown]
  - Confusional state [Unknown]
  - Therapy change [Unknown]
  - Pain [Not Recovered/Not Resolved]
  - Chills [Unknown]
  - Arthralgia [Unknown]
  - Peripheral swelling [Unknown]
  - Infusion site pain [Unknown]
  - Memory impairment [Unknown]
  - Hypotension [Unknown]
  - Catheter site swelling [Unknown]
  - Product administration error [Unknown]
  - Dizziness postural [Unknown]
  - Mouth breathing [Unknown]
  - Hypoaesthesia [Not Recovered/Not Resolved]
  - Skin burning sensation [Unknown]
  - Dizziness [Recovering/Resolving]
  - Cough [Not Recovered/Not Resolved]
  - Product dose omission issue [Unknown]
  - Back pain [Not Recovered/Not Resolved]
  - Pain in extremity [Unknown]
  - Musculoskeletal stiffness [Unknown]
  - Device occlusion [Unknown]
  - Renal disorder [Unknown]
  - Diarrhoea [Not Recovered/Not Resolved]
  - Arthralgia [Unknown]
  - Pulmonary arterial pressure increased [Unknown]
  - Malaise [Unknown]
  - Sinusitis [Unknown]
  - Sneezing [Not Recovered/Not Resolved]
  - Wheezing [Not Recovered/Not Resolved]
  - Flank pain [Unknown]
  - Joint swelling [Unknown]
  - Chest discomfort [Recovered/Resolved]
  - Weight decreased [Unknown]
  - Headache [Not Recovered/Not Resolved]
  - Lethargy [Not Recovered/Not Resolved]
  - Dyspnoea exertional [Unknown]
  - Dry mouth [Unknown]
  - Dyspnoea [Unknown]
  - Vomiting [Unknown]
  - Asthenia [Recovering/Resolving]
  - Abdominal pain [Unknown]
  - Infusion site swelling [Unknown]
  - Bone pain [Not Recovered/Not Resolved]
  - Nausea [Recovering/Resolving]
  - Productive cough [Unknown]
  - Decreased appetite [Recovering/Resolving]
  - Nasopharyngitis [Unknown]
  - Pruritus [Unknown]
  - Sinus congestion [Recovering/Resolving]
  - Catheter management [Unknown]
  - Paraesthesia [Unknown]
  - Sciatica [Unknown]
  - Catheter site discolouration [Unknown]
  - Feeling abnormal [Unknown]
  - Gait disturbance [Not Recovered/Not Resolved]

NARRATIVE: CASE EVENT DATE: 202002
